FAERS Safety Report 20219672 (Version 1)
Quarter: 2021Q4

REPORT INFORMATION
  Report Type: Spontaneous
  Country: TR (occurrence: TR)
  Receive Date: 20211222
  Receipt Date: 20211222
  Transmission Date: 20220303
  Serious: Yes (Hospitalization, Other)
  Sender: FDA-Public Use
  Company Number: TR-GLAXOSMITHKLINE-TR2021GSK254567

PATIENT
  Age: 11 Year
  Sex: Male

DRUGS (1)
  1. LAMOTRIGINE [Suspect]
     Active Substance: LAMOTRIGINE
     Indication: Epilepsy
     Dosage: UNK

REACTIONS (6)
  - Fixed eruption [Recovered/Resolved]
  - Epidermal necrosis [Unknown]
  - Rash [Recovered/Resolved]
  - Lymphocytic infiltration [Unknown]
  - Skin lesion [Recovered/Resolved]
  - Skin hyperpigmentation [Unknown]
